FAERS Safety Report 20783948 (Version 1)
Quarter: 2022Q2

REPORT INFORMATION
  Report Type: Report from Study
  Country: US (occurrence: US)
  Receive Date: 20220504
  Receipt Date: 20220504
  Transmission Date: 20220720
  Serious: Yes (Death, Other)
  Sender: FDA-Public Use
  Company Number: US-TAKEDA-2022TUS029526

PATIENT
  Age: 16 Year
  Sex: Male

DRUGS (13)
  1. IDURSULFASE [Suspect]
     Active Substance: IDURSULFASE
     Indication: Mucopolysaccharidosis II
     Dosage: UNK
     Route: 042
  2. CLONIDINE [Concomitant]
     Active Substance: CLONIDINE
     Indication: Behaviour disorder
     Dosage: UNK
     Route: 048
     Dates: start: 20060913, end: 2009
  3. MIRALAX [Concomitant]
     Active Substance: POLYETHYLENE GLYCOL 3350
     Indication: Constipation
     Dosage: UNK
     Route: 048
     Dates: start: 20060913, end: 2009
  4. ALBUTEROL [Concomitant]
     Active Substance: ALBUTEROL
     Indication: Wheezing
     Dosage: UNK
     Route: 050
     Dates: start: 2007
  5. SINGULAIR [Concomitant]
     Active Substance: MONTELUKAST SODIUM
     Indication: Asthma
     Dosage: UNK
     Route: 050
     Dates: start: 2007, end: 2007
  6. AUGMENTAM [Concomitant]
     Indication: Sinusitis
     Dosage: UNK
     Route: 048
     Dates: start: 200705, end: 2007
  7. NYSTATIN [Concomitant]
     Active Substance: NYSTATIN
     Indication: Fungal infection
     Dosage: UNK
     Route: 048
     Dates: start: 200705, end: 2007
  8. AMPHETAMINE [Concomitant]
     Active Substance: AMPHETAMINE
     Indication: Behaviour disorder
     Dosage: UNK
     Route: 048
     Dates: start: 20070508, end: 2009
  9. BUDESONIDE [Concomitant]
     Active Substance: BUDESONIDE
     Indication: Respiratory disorder
     Dosage: UNK
     Route: 050
     Dates: start: 20080417
  10. FLUTICASONE [Concomitant]
     Active Substance: FLUTICASONE
     Indication: Nasal congestion
     Dosage: UNK
     Route: 045
     Dates: start: 20080417, end: 2009
  11. XOPENEX [Concomitant]
     Active Substance: LEVALBUTEROL HYDROCHLORIDE
     Indication: Respiratory disorder
     Dosage: UNK
     Route: 050
     Dates: start: 20080417
  12. SILVADENE [Concomitant]
     Active Substance: SILVER SULFADIAZINE
     Indication: Infection
     Dosage: UNK
     Route: 061
     Dates: start: 2009
  13. DIGOXIN [Concomitant]
     Active Substance: DIGOXIN
     Indication: Cardiovascular disorder
     Dosage: UNK
     Route: 048
     Dates: start: 20090625

REACTIONS (1)
  - Death [Fatal]

NARRATIVE: CASE EVENT DATE: 20200228
